FAERS Safety Report 16616311 (Version 1)
Quarter: 2019Q3

REPORT INFORMATION
  Report Type: Spontaneous
  Country: JP (occurrence: JP)
  Receive Date: 20190723
  Receipt Date: 20190723
  Transmission Date: 20191004
  Serious: Yes (Other)
  Sender: FDA-Public Use
  Company Number: JP-009507513-1907JPN013176

PATIENT
  Age: 73 Year
  Sex: Female
  Weight: 38 kg

DRUGS (4)
  1. MINOMYCIN [Concomitant]
     Active Substance: MINOCYCLINE HYDROCHLORIDE
     Dosage: 100 MG, BID
     Route: 048
     Dates: start: 20181102
  2. TEDIZOLID PHOSPHATE. [Suspect]
     Active Substance: TEDIZOLID PHOSPHATE
     Indication: POST PROCEDURAL INFECTION
     Dosage: 200 MG, QD, SIVEXTRO
     Route: 041
     Dates: start: 20181108, end: 20181126
  3. RIFAMPIN. [Concomitant]
     Active Substance: RIFAMPIN
     Dosage: 150 MILLIGRAM, TID
     Route: 048
     Dates: start: 20181106, end: 20181124
  4. CLINDAMYCIN. [Concomitant]
     Active Substance: CLINDAMYCIN
     Indication: POST PROCEDURAL INFECTION
     Dosage: 600 MG, BID
     Route: 041
     Dates: start: 20181108, end: 20181210

REACTIONS (1)
  - Pancytopenia [Recovered/Resolved]

NARRATIVE: CASE EVENT DATE: 20181126
